FAERS Safety Report 25699630 (Version 2)
Quarter: 2025Q3

REPORT INFORMATION
  Report Type: Spontaneous
  Country: MX (occurrence: MX)
  Receive Date: 20250819
  Receipt Date: 20250926
  Transmission Date: 20251020
  Serious: Yes (Death, Hospitalization)
  Sender: ROCHE
  Company Number: MX-ROCHE-10000349731

PATIENT
  Age: 50 Year
  Sex: Male

DRUGS (7)
  1. RITUXIMAB [Suspect]
     Active Substance: RITUXIMAB
     Indication: Prophylaxis against transplant rejection
     Route: 065
  2. METHYLPREDNISOLONE [Suspect]
     Active Substance: METHYLPREDNISOLONE
     Indication: Prophylaxis against transplant rejection
     Route: 065
  3. PREDNISONE [Suspect]
     Active Substance: PREDNISONE
     Indication: Prophylaxis against transplant rejection
     Route: 065
  4. TACROLIMUS [Suspect]
     Active Substance: TACROLIMUS
     Indication: Prophylaxis against transplant rejection
     Route: 065
  5. MYCOPHENOLIC ACID [Suspect]
     Active Substance: MYCOPHENOLIC ACID
     Indication: Prophylaxis against transplant rejection
     Route: 065
  6. TELMISARTAN [Concomitant]
     Active Substance: TELMISARTAN
  7. AMLODIPINE [Concomitant]
     Active Substance: AMLODIPINE BESYLATE

REACTIONS (16)
  - Disseminated cryptococcosis [Fatal]
  - Cryptococcosis [Fatal]
  - Trichosporon infection [Unknown]
  - Pneumonia staphylococcal [Unknown]
  - Enterococcal infection [Unknown]
  - Pneumonia cryptococcal [Fatal]
  - Respiratory distress [Unknown]
  - Atelectasis [Unknown]
  - Cardiac failure [Unknown]
  - Gastrointestinal haemorrhage [Unknown]
  - Multiple organ dysfunction syndrome [Fatal]
  - Apallic syndrome [Fatal]
  - Neurological decompensation [Fatal]
  - Hypogammaglobulinaemia [Fatal]
  - Pneumonia fungal [Fatal]
  - Hypovolaemic shock [Fatal]
